FAERS Safety Report 21851913 (Version 1)
Quarter: 2023Q1

REPORT INFORMATION
  Report Type: Report from Study
  Country: US (occurrence: US)
  Receive Date: 20230112
  Receipt Date: 20230112
  Transmission Date: 20230418
  Serious: No
  Sender: FDA-Public Use
  Company Number: US-ABBVIE-4233444

PATIENT
  Sex: Male

DRUGS (1)
  1. SKYRIZI [Suspect]
     Active Substance: RISANKIZUMAB-RZAA
     Indication: Psoriasis
     Dosage: ONSET FOR DESIRED RESULTS NOT ACHIEVED FOR SKYRIZI WAS 2022
     Route: 058
     Dates: start: 202209, end: 202210

REACTIONS (1)
  - Therapeutic product effect incomplete [Not Recovered/Not Resolved]
